FAERS Safety Report 9257663 (Version 1)
Quarter: 2013Q2

REPORT INFORMATION
  Report Type: Spontaneous
  Country: US (occurrence: None)
  Receive Date: 20130424
  Receipt Date: 20130424
  Transmission Date: 20140414
  Serious: No
  Sender: FDA-Public Use
  Company Number: None

PATIENT
  Age: 71 Year
  Sex: Male
  Weight: 101.4 kg

DRUGS (2)
  1. PEGINTERFERON [Suspect]
     Indication: HEPATITIS C
     Dosage: MCG
     Route: 058
     Dates: start: 20120307
  2. RIBAVIRIN [Suspect]
     Indication: HEPATITIS C
     Dosage: MG
     Route: 048
     Dates: start: 20120307

REACTIONS (5)
  - Cough [None]
  - Bronchitis chronic [None]
  - Pulmonary mass [None]
  - Wheezing [None]
  - Adrenal mass [None]
